FAERS Safety Report 10140014 (Version 1)
Quarter: 2014Q2

REPORT INFORMATION
  Report Type: Spontaneous
  Country: US (occurrence: US)
  Receive Date: 20140429
  Receipt Date: 20140429
  Transmission Date: 20141212
  Serious: Yes (Other)
  Sender: FDA-Public Use
  Company Number: US-WATSON-2014-08263

PATIENT
  Age: 72 Year
  Sex: Male

DRUGS (1)
  1. TRELSTAR (WATSON LABORATORIES) [Suspect]
     Indication: PROSTATE CANCER
     Dosage: 1 INJECTION IM Q 6 MONTHS
     Route: 030
     Dates: start: 20140110

REACTIONS (5)
  - Dementia [Not Recovered/Not Resolved]
  - Back pain [Not Recovered/Not Resolved]
  - Fatigue [Not Recovered/Not Resolved]
  - Oedema peripheral [Not Recovered/Not Resolved]
  - Arthralgia [Not Recovered/Not Resolved]
